FAERS Safety Report 8258936-X (Version None)
Quarter: 2012Q2

REPORT INFORMATION
  Report Type: 
  Country: None (occurrence: None)
  Receive Date: 20120404
  Receipt Date: 20120321
  Transmission Date: 20120825
  Serious: Yes (Hospitalization)
  Sender: FDA-Public Use
  Company Number: JP-ROCHE-1044988

PATIENT
  Sex: Female
  Weight: 22 kg

DRUGS (7)
  1. MINOCYCLINE HYDROCHLORIDE [Suspect]
     Indication: PYREXIA
  2. AZITHROMYCIN [Suspect]
     Indication: PYREXIA
     Dosage: DOSAGE IS UNCERTAIN.
     Route: 048
     Dates: start: 20110922, end: 20110924
  3. CEFDITOREN PIVOXIL [Suspect]
     Indication: PYREXIA
     Dosage: DOSAGE IS UNCERTAIN.
     Route: 048
     Dates: start: 20110924, end: 20110926
  4. CLARITHROMYCIN [Suspect]
     Indication: PYREXIA
     Dosage: DOSAGE IS UNCERTAIN.
     Route: 048
     Dates: start: 20110920, end: 20110922
  5. AMPICILLIN AND SULBACTAM [Suspect]
     Indication: PYREXIA
  6. ROCEPHIN [Suspect]
     Indication: PYREXIA
     Dosage: DOSAGE IS UNCERTAIN.
     Route: 041
     Dates: start: 20110924, end: 20110924
  7. CLINDAMYCIN [Suspect]
     Indication: PYREXIA
     Dosage: DOSAGE IS UNCERTAIN.
     Route: 042
     Dates: start: 20110922, end: 20110922

REACTIONS (1)
  - PSEUDOMEMBRANOUS COLITIS [None]
